FAERS Safety Report 8214491-1 (Version None)
Quarter: 2012Q1

REPORT INFORMATION
  Report Type: 
  Country: None (occurrence: None)
  Receive Date: 20120316
  Receipt Date: 20120316
  Transmission Date: 20120608
  Serious: Yes (Death)
  Sender: FDA-Public Use
  Company Number: None

PATIENT
  Age: 90 Year
  Sex: Female

DRUGS (3)
  1. CELEBREX [Concomitant]
     Dosage: 200MG.
     Route: 048
  2. ZOCOR [Concomitant]
     Route: 048
  3. DIFLUCAN [Suspect]
     Indication: VAGINAL INFECTION
     Dosage: 200.0 MG
     Route: 048

REACTIONS (2)
  - COMA [None]
  - HEPATITIS ACUTE [None]
